FAERS Safety Report 9223754 (Version 1)
Quarter: 2013Q2

REPORT INFORMATION
  Report Type: Spontaneous
  Country: IT (occurrence: IT)
  Receive Date: 20130410
  Receipt Date: 20130410
  Transmission Date: 20140414
  Serious: Yes (Hospitalization)
  Sender: FDA-Public Use
  Company Number: IT-MERCK-1304ITA003200

PATIENT
  Age: 42 Year
  Sex: Female

DRUGS (7)
  1. REMERON [Suspect]
     Indication: INTENTIONAL SELF-INJURY
     Dosage: 1 DOSE (UNIT)
     Route: 048
     Dates: start: 20130329, end: 20130329
  2. REMERON [Suspect]
     Indication: DEPRESSION
     Dosage: UNK
     Route: 048
  3. RIVOTRIL [Suspect]
     Indication: INTENTIONAL SELF-INJURY
     Dosage: 1 DOSE (UNIT)
     Route: 048
     Dates: start: 20130329, end: 20130329
  4. RIVOTRIL [Suspect]
     Indication: DEPRESSION
     Dosage: UNK
     Route: 048
  5. SEROQUEL [Suspect]
     Indication: INTENTIONAL SELF-INJURY
     Dosage: UNK, ONCE
     Route: 048
     Dates: start: 20130329, end: 20130329
  6. SEROQUEL [Suspect]
     Indication: DEPRESSION
     Dosage: UNK
     Route: 048
  7. SEROQUEL [Suspect]
     Indication: INTENTIONAL SELF-INJURY
     Dosage: UNK, ONCE
     Route: 048
     Dates: start: 20130329, end: 20130329

REACTIONS (4)
  - Intentional self-injury [Recovered/Resolved]
  - Sopor [Recovered/Resolved]
  - Intentional overdose [Recovered/Resolved]
  - Hypotension [Recovered/Resolved]
